FAERS Safety Report 24399015 (Version 1)
Quarter: 2024Q4

REPORT INFORMATION
  Report Type: Spontaneous
  Country: MT (occurrence: MT)
  Receive Date: 20241004
  Receipt Date: 20241004
  Transmission Date: 20250114
  Serious: Yes (Death)
  Sender: PFIZER
  Company Number: MT-PFIZER INC-PV202400128027

PATIENT
  Age: 48 Year
  Sex: Male

DRUGS (1)
  1. ATIVAN [Suspect]
     Active Substance: LORAZEPAM
     Indication: Sedative therapy
     Dosage: 2 MG (TWO 1MG ATIVAN PILLS)
     Dates: start: 20240706

REACTIONS (2)
  - Cardiac arrest [Fatal]
  - Condition aggravated [Fatal]

NARRATIVE: CASE EVENT DATE: 20240706
